FAERS Safety Report 4883012-3 (Version None)
Quarter: 2006Q1

REPORT INFORMATION
  Report Type: 
  Country: None (occurrence: None)
  Receive Date: 20060118
  Receipt Date: 20051107
  Transmission Date: 20060701
  Serious: Yes (Death, Hospitalization)
  Sender: FDA-Public Use
  Company Number: BE-ABBOTT-05P-013-0316870-00

PATIENT
  Sex: Female

DRUGS (14)
  1. HUMIRA [Suspect]
     Indication: RHEUMATOID ARTHRITIS
     Route: 058
     Dates: start: 20050725, end: 20050901
  2. CLOPIDOGREL BISULFATE [Concomitant]
     Indication: DRUG USE FOR UNKNOWN INDICATION
     Route: 048
  3. ASPIRIN [Concomitant]
     Indication: DRUG USE FOR UNKNOWN INDICATION
     Route: 048
  4. ALENDRONATE SODIUM [Concomitant]
     Indication: DRUG USE FOR UNKNOWN INDICATION
  5. PROTHLADEN [Concomitant]
     Indication: DRUG USE FOR UNKNOWN INDICATION
  6. INDOMETHACIN [Concomitant]
     Indication: DRUG USE FOR UNKNOWN INDICATION
     Route: 054
  7. FOLIC ACID [Concomitant]
     Indication: DRUG USE FOR UNKNOWN INDICATION
  8. METHOTREXATE SODIUM [Concomitant]
     Indication: DRUG USE FOR UNKNOWN INDICATION
  9. DOLZAM RETARD [Concomitant]
     Indication: DRUG USE FOR UNKNOWN INDICATION
  10. ALPRAZOMED [Concomitant]
     Indication: DRUG USE FOR UNKNOWN INDICATION
  11. BISOPROLOL [Concomitant]
     Indication: DRUG USE FOR UNKNOWN INDICATION
  12. TRAMADOL HCL [Concomitant]
     Indication: DRUG USE FOR UNKNOWN INDICATION
  13. RANITIDINE HYDROCHLORIDE [Concomitant]
     Indication: DRUG USE FOR UNKNOWN INDICATION
  14. HALCOIN [Concomitant]
     Indication: DRUG USE FOR UNKNOWN INDICATION

REACTIONS (12)
  - ANAEMIA [None]
  - C-REACTIVE PROTEIN INCREASED [None]
  - CARCINOEMBRYONIC ANTIGEN INCREASED [None]
  - CARDIOMEGALY [None]
  - DIVERTICULUM [None]
  - DUODENAL ULCER [None]
  - GASTRIC ULCER [None]
  - LIVER FUNCTION TEST ABNORMAL [None]
  - METASTASES TO LIVER [None]
  - OSTEOPOROSIS [None]
  - RED BLOOD CELL SEDIMENTATION RATE INCREASED [None]
  - SPINAL COMPRESSION FRACTURE [None]
